FAERS Safety Report 6576996-9 (Version None)
Quarter: 2010Q1

REPORT INFORMATION
  Report Type: 
  Country: None (occurrence: None)
  Receive Date: 20100210
  Receipt Date: 20100201
  Transmission Date: 20100710
  Serious: Yes (Hospitalization)
  Sender: FDA-Public Use
  Company Number: FR-KINGPHARMUSA00001-K201000114

PATIENT
  Sex: Female

DRUGS (8)
  1. ALTACE [Suspect]
     Indication: MYOCARDIAL ISCHAEMIA
     Dosage: 1.2 MG, QD
     Route: 048
     Dates: end: 20090917
  2. SPIRONOLAKTON [Suspect]
     Dosage: UNK
     Dates: end: 20090917
  3. PLAVIX [Concomitant]
     Dosage: 75 MG, QD
     Dates: start: 20090909, end: 20090917
  4. TROMBYL [Concomitant]
     Dosage: 75 MG, QD
     Dates: end: 20090917
  5. SELOKEN [Concomitant]
  6. RISPERDAL [Concomitant]
  7. SIMVASTATIN [Concomitant]
  8. PROPAVAN [Concomitant]

REACTIONS (5)
  - BRAIN CONTUSION [None]
  - CEREBRAL HAEMORRHAGE [None]
  - FALL [None]
  - HEAD INJURY [None]
  - HYPOTENSION [None]
